FAERS Safety Report 24287055 (Version 1)
Quarter: 2024Q3

REPORT INFORMATION
  Report Type: Spontaneous
  Country: US (occurrence: US)
  Receive Date: 20240905
  Receipt Date: 20240905
  Transmission Date: 20241017
  Serious: No
  Sender: PERRIGO
  Company Number: US-PERRIGO-24US005908

PATIENT

DRUGS (1)
  1. ACETAMINOPHEN AND IBUPROFEN [Suspect]
     Active Substance: ACETAMINOPHEN\IBUPROFEN
     Indication: Neck pain
     Dosage: 20 TABLETS, UNKNOWN
     Route: 048

REACTIONS (3)
  - Headache [Unknown]
  - Dizziness [Unknown]
  - Overdose [Unknown]

NARRATIVE: CASE EVENT DATE: 20240617
